FAERS Safety Report 20479577 (Version 1)
Quarter: 2022Q1

REPORT INFORMATION
  Report Type: Spontaneous
  Country: US (occurrence: None)
  Receive Date: 20220215
  Receipt Date: 20220215
  Transmission Date: 20220423
  Serious: No
  Sender: FDA-Public Use
  Company Number: None

PATIENT
  Age: 39 Year
  Sex: Female

DRUGS (6)
  1. INJECTAFER [Suspect]
     Active Substance: FERRIC CARBOXYMALTOSE
     Indication: Iron deficiency
     Dosage: OTHER FREQUENCY : 2 INFUSIONS 7 DAYS;?
     Route: 042
     Dates: start: 20220211, end: 20220211
  2. THORNE MULTIVITAMIN [Concomitant]
  3. VITAMIN D3 [Concomitant]
     Active Substance: CHOLECALCIFEROL
  4. FISH OIL WITH DHA [Concomitant]
  5. LIONS MANE [Concomitant]
  6. BIOTIN [Concomitant]
     Active Substance: BIOTIN

REACTIONS (11)
  - Infusion related reaction [None]
  - Fatigue [None]
  - Chills [None]
  - Pain [None]
  - Chest discomfort [None]
  - Muscle tightness [None]
  - Nausea [None]
  - Diarrhoea [None]
  - Constipation [None]
  - Myocardial infarction [None]
  - Respiratory rate increased [None]

NARRATIVE: CASE EVENT DATE: 20220213
